FAERS Safety Report 11492306 (Version 1)
Quarter: 2015Q3

REPORT INFORMATION
  Report Type: Spontaneous
  Country: IN (occurrence: None)
  Receive Date: 20150909
  Receipt Date: 20150909
  Transmission Date: 20151125
  Serious: Yes (Other)
  Sender: FDA-Public Use
  Company Number: 2015HINLIT0726

PATIENT
  Age: 60 Year
  Sex: Male

DRUGS (2)
  1. LITHIUM. [Suspect]
     Active Substance: LITHIUM
     Indication: BIPOLAR DISORDER
  2. ELTROXIN [Concomitant]
     Active Substance: LEVOTHYROXINE

REACTIONS (4)
  - Lacunar infarction [None]
  - Oromandibular dystonia [None]
  - Dystonia [None]
  - Pancreatitis [None]
